FAERS Safety Report 8593437 (Version 2)
Quarter: 2014Q1

REPORT INFORMATION
  Report Type: Spontaneous
  Country: US (occurrence: US)
  Receive Date: 20120604
  Receipt Date: 20140121
  Transmission Date: 20141002
  Serious: No
  Sender: FDA-Public Use
  Company Number: US-ASTRAZENECA-2012SE34904

PATIENT
  Sex: Female
  Weight: 88 kg

DRUGS (19)
  1. NEXIUM [Suspect]
     Route: 048
  2. NEXIUM [Suspect]
     Route: 048
     Dates: start: 20090210
  3. CRESTOR [Concomitant]
     Route: 048
     Dates: start: 20091105
  4. OMEPRAZOLE [Concomitant]
     Route: 048
     Dates: start: 20090624
  5. ALBUTEROL SULFATE [Concomitant]
     Indication: DYSPNOEA
     Dosage: 2.5 MG/ 3 ML, FOUR TIMES A DAY
  6. ASPIRIN [Concomitant]
  7. AZITHROMYCIN [Concomitant]
  8. CYMBALTA [Concomitant]
  9. DILTIAZEM HCL [Concomitant]
  10. DOCUSATE SODIUM [Concomitant]
     Dosage: 100 MG, AS DIRECTED.
  11. LEVOTHYROID [Concomitant]
     Route: 048
     Dates: start: 20090224
  12. LISINOPRIL [Concomitant]
     Route: 048
  13. MAGNESIUM OXIDE [Concomitant]
  14. METFORMIN HCL [Concomitant]
     Route: 048
     Dates: start: 20090210
  15. METOPROLOL TARTRATE [Concomitant]
     Indication: HYPERTENSION
     Dates: start: 20090225
  16. FUROSEMIDE [Concomitant]
     Dosage: TAKE ONE TABLET EVERY MORNING AND TAKE ONE-HALF TABLET DAILY AT 4P
     Route: 048
     Dates: start: 20090210
  17. MECLIZINE [Concomitant]
     Indication: DIZZINESS
     Dosage: TAKE ONE TABLET 3 TIMES DAILY AS NEEDED
     Route: 048
     Dates: start: 20090224
  18. AVAPRO [Concomitant]
     Indication: HYPERTENSION
     Route: 048
     Dates: start: 20090225
  19. TRAMADOL [Concomitant]
     Route: 048
     Dates: start: 20091104

REACTIONS (3)
  - Osteoporosis [Unknown]
  - Multiple fractures [Unknown]
  - Osteoarthritis [Unknown]
